FAERS Safety Report 6580381-3 (Version None)
Quarter: 2010Q1

REPORT INFORMATION
  Report Type: 
  Country: None (occurrence: None)
  Receive Date: 20100203
  Receipt Date: 20100118
  Transmission Date: 20100710
  Serious: Yes (Death)
  Sender: FDA-Public Use
  Company Number: B0627841A

PATIENT
  Age: 21 Year
  Sex: Female

DRUGS (8)
  1. QUETIAPINE [Suspect]
     Dosage: ORAL
     Route: 048
  2. HYDROCODONE + PARACETAMOL (FORMULATION UNKNOWN) (GENERIC) (HYDROCODONE [Suspect]
     Dosage: ORAL
     Route: 048
  3. OXYCODONE + PARACETAMOL (FORMULATION UNKNOWN) (GENERIC) (OXYCODONE + A [Suspect]
     Dosage: ORAL
     Route: 048
  4. DEXTROPROP. + PARACETAMOL (FORMULATION UNKNOWN) (GENERIC) (PROPOXYPHEN [Suspect]
     Dosage: ORAL
     Route: 048
  5. OXCARBAZEPINE (FORMULATION UNKNOWN) (GENERIC) (OXCARBAZEPINE) [Suspect]
     Dosage: ORAL
     Route: 048
  6. LAMOTRIGINE [Suspect]
     Dosage: ORAL
     Route: 048
  7. ALPRAZOLAM [Suspect]
     Dosage: ORAL
     Route: 048
  8. SERTRALINE (FORMULATION UNKNOWN) (GENERIC) (SERTRALINE) [Suspect]
     Dosage: ORAL
     Route: 048

REACTIONS (1)
  - COMPLETED SUICIDE [None]
